FAERS Safety Report 5591320-6 (Version None)
Quarter: 2008Q1

REPORT INFORMATION
  Report Type: 
  Country: None (occurrence: None)
  Receive Date: 20080115
  Receipt Date: 20080104
  Transmission Date: 20080703
  Serious: Yes (Congenital Anomaly)
  Sender: FDA-Public Use
  Company Number: FR-BAYER-200810418GPV

PATIENT
  Age: 0 Hour
  Sex: Female

DRUGS (9)
  1. IZILOX [Suspect]
     Indication: SINUSITIS
     Dosage: TOTAL DAILY DOSE: 400 MG  UNIT DOSE: 400 MG
     Route: 064
     Dates: start: 20060116, end: 20060118
  2. ADALAT [Suspect]
     Indication: THREATENED LABOUR
     Route: 064
  3. ULTRACET [Suspect]
     Indication: SINUSITIS
     Route: 064
     Dates: start: 20051216, end: 20060115
  4. FLUIMUCIL [Suspect]
     Indication: SINUSITIS
     Route: 064
     Dates: start: 20060116, end: 20060122
  5. HEXAPNEUMINE [Suspect]
     Indication: DRUG USE FOR UNKNOWN INDICATION
     Route: 064
     Dates: start: 20060116, end: 20060116
  6. DETURGYLONE [Suspect]
     Indication: SINUSITIS
     Route: 064
     Dates: start: 20060110, end: 20060110
  7. NULYTELY [Suspect]
     Indication: CONSTIPATION
     Route: 064
     Dates: start: 20060117, end: 20060117
  8. MODANE [Suspect]
     Indication: CONSTIPATION
     Route: 064
     Dates: start: 20060116, end: 20060116
  9. CELESTONE [Concomitant]
     Indication: THREATENED LABOUR
     Route: 064

REACTIONS (2)
  - CARDIOMYOPATHY NEONATAL [None]
  - CONGENITAL MITOCHONDRIAL CYTOPATHY [None]
